FAERS Safety Report 8059678-6 (Version None)
Quarter: 2012Q1

REPORT INFORMATION
  Report Type: 
  Country: None (occurrence: None)
  Receive Date: 20120120
  Receipt Date: 20120113
  Transmission Date: 20120608
  Serious: Yes (Death)
  Sender: FDA-Public Use
  Company Number: PHHY2012DE003424

PATIENT
  Sex: Male
  Weight: 133 kg

DRUGS (8)
  1. ZOMETA [Suspect]
     Indication: BONE DISORDER
     Dosage: 4 MG, UNK
     Route: 042
     Dates: start: 20110726
  2. TORSEMIDE [Concomitant]
     Dosage: 100 MG,/ DAY
  3. ZOMETA [Suspect]
     Dosage: 4 MG, UNK
     Route: 042
     Dates: start: 20111025
  4. EVEROLIMUS [Concomitant]
     Dosage: 5 MG/ DAY
     Dates: start: 20110808
  5. BENALAPRIL PLUS [Concomitant]
  6. ESCITALOPRAM [Concomitant]
     Dosage: 10 MG/ DAY
     Dates: start: 20110901
  7. SANDOSTATIN LAR [Concomitant]
     Dosage: 30 MG/ MONTH
     Dates: start: 20110414
  8. MCP DROP [Concomitant]

REACTIONS (1)
  - DEATH [None]
